FAERS Safety Report 6774392-2 (Version None)
Quarter: 2010Q2

REPORT INFORMATION
  Report Type: 
  Country: None (occurrence: None)
  Receive Date: 20100617
  Receipt Date: 20100609
  Transmission Date: 20101027
  Serious: Yes (Other)
  Sender: FDA-Public Use
  Company Number: FR-JNJFOC-20100602877

PATIENT
  Sex: Male

DRUGS (4)
  1. RISPERDAL [Suspect]
     Indication: DRUG USE FOR UNKNOWN INDICATION
     Route: 048
     Dates: start: 20100517
  2. LOXAPAC [Suspect]
     Indication: DRUG USE FOR UNKNOWN INDICATION
     Route: 048
     Dates: start: 20100517
  3. LOXAPAC [Suspect]
     Route: 048
     Dates: start: 20100517
  4. REMINYL [Concomitant]
     Route: 048
     Dates: end: 20100517

REACTIONS (1)
  - ATRIAL FLUTTER [None]
